FAERS Safety Report 5739029-X (Version None)
Quarter: 2008Q2

REPORT INFORMATION
  Report Type: 
  Country: None (occurrence: None)
  Receive Date: 20080515
  Receipt Date: 20080408
  Transmission Date: 20081010
  Serious: No
  Sender: FDA-Public Use
  Company Number: US-BAYER-200819595NA

PATIENT
  Age: 11 Year
  Sex: Female
  Weight: 64 kg

DRUGS (1)
  1. ULTRAVIST 300 [Suspect]
     Indication: COMPUTERISED TOMOGRAM
     Dosage: TOTAL DAILY DOSE: 50 ML  UNIT DOSE: 50 ML
     Route: 042
     Dates: start: 20080408, end: 20080408

REACTIONS (2)
  - SNEEZING [None]
  - VOMITING [None]
